FAERS Safety Report 9588705 (Version 1)
Quarter: 2013Q4

REPORT INFORMATION
  Report Type: Spontaneous
  Country: US (occurrence: US)
  Receive Date: 20131003
  Receipt Date: 20131003
  Transmission Date: 20140711
  Serious: No
  Sender: FDA-Public Use
  Company Number: US-AMGEN-USASP2012065648

PATIENT
  Age: 75 Year
  Sex: Female

DRUGS (11)
  1. ENBREL [Suspect]
     Indication: PRODUCT USED FOR UNKNOWN INDICATION
     Dosage: 50 MG, QWK
     Route: 058
  2. PANTOPRAZOLE [Concomitant]
     Dosage: 20 MG, UNK
  3. VICODIN [Concomitant]
     Dosage: 7.5-750
  4. ESTRADERM [Concomitant]
     Dosage: 0.05 MG, UNK
  5. NAPROXEN [Concomitant]
     Dosage: 250 MG, UNK
  6. METFORMIN [Concomitant]
     Dosage: 500 MG ER, UNK
  7. CRESTOR [Concomitant]
     Dosage: 10 MG, UNK
  8. LEXAPRO [Concomitant]
     Dosage: 20 MG, UNK
  9. MICARDIS HCT [Concomitant]
     Dosage: 80/12.5
  10. SPIRIVA HANDIHALER [Concomitant]
     Dosage: UNK
  11. ASPIRIN [Concomitant]
     Dosage: 81 MG, UNK

REACTIONS (1)
  - Rash generalised [Unknown]
